FAERS Safety Report 19208819 (Version 6)
Quarter: 2021Q3

REPORT INFORMATION
  Report Type: Report from Study
  Country: US (occurrence: US)
  Receive Date: 20210504
  Receipt Date: 20210928
  Transmission Date: 20211014
  Serious: Yes (Death, Hospitalization, Other)
  Sender: FDA-Public Use
  Company Number: US-B.I. PHARMACEUTICALS,INC./RIDGEFIELD-2020-BI-058204

PATIENT
  Age: 78 Year
  Sex: Female

DRUGS (1)
  1. OFEV [Suspect]
     Active Substance: NINTEDANIB
     Indication: PULMONARY FIBROSIS
     Dosage: TAKE ONE BY MOUTH TWICE DAILY
     Route: 048

REACTIONS (8)
  - Pneumonia [Recovered/Resolved]
  - Cerebrovascular accident [Recovered/Resolved]
  - Haematuria [Unknown]
  - Oxygen saturation decreased [Not Recovered/Not Resolved]
  - Constipation [Recovered/Resolved]
  - Cerebrovascular accident [Fatal]
  - Decreased appetite [Not Recovered/Not Resolved]
  - Loss of consciousness [Unknown]

NARRATIVE: CASE EVENT DATE: 20201020
